FAERS Safety Report 13207605 (Version 1)
Quarter: 2017Q1

REPORT INFORMATION
  Report Type: Spontaneous
  Country: US (occurrence: US)
  Receive Date: 20170209
  Receipt Date: 20170209
  Transmission Date: 20170428
  Serious: No
  Sender: FDA-Public Use
  Company Number: US-SA-2017SA008537

PATIENT
  Age: 45 Year
  Sex: Male

DRUGS (3)
  1. ALIROCUMAB PREFILLED PEN [Concomitant]
     Active Substance: ALIROCUMAB
     Indication: HYPERCHOLESTEROLAEMIA
     Dates: start: 20160718
  2. PRALUENT [Suspect]
     Active Substance: ALIROCUMAB
     Indication: HYPERCHOLESTEROLAEMIA
     Route: 058
     Dates: start: 20160718
  3. EZETIMIBE. [Concomitant]
     Active Substance: EZETIMIBE

REACTIONS (3)
  - Confusional state [Unknown]
  - Amnesia [Unknown]
  - Influenza like illness [Unknown]
